FAERS Safety Report 6804125-2 (Version None)
Quarter: 2010Q2

REPORT INFORMATION
  Report Type: 
  Country: None (occurrence: None)
  Receive Date: 20100628
  Receipt Date: 20060420
  Transmission Date: 20101027
  Serious: No
  Sender: FDA-Public Use
  Company Number: US-PFIZER INC-2006056020

PATIENT

DRUGS (2)
  1. SUTENT [Suspect]
     Indication: GASTROINTESTINAL STROMAL TUMOUR
     Dosage: CYCLIC 6 V2 WEEKS
     Route: 048
     Dates: start: 20060323
  2. LASIX [Concomitant]
     Dates: end: 20060325

REACTIONS (5)
  - ABDOMINAL PAIN [None]
  - OEDEMA PERIPHERAL [None]
  - ORAL PAIN [None]
  - PERIORBITAL OEDEMA [None]
  - SKIN ATROPHY [None]
